FAERS Safety Report 7361753-6 (Version None)
Quarter: 2011Q1

REPORT INFORMATION
  Report Type: 
  Country: None (occurrence: None)
  Receive Date: 20110318
  Receipt Date: 20110309
  Transmission Date: 20110831
  Serious: Yes (Congenital Anomaly)
  Sender: FDA-Public Use
  Company Number: JP-MERCK-1103USA01800B1

PATIENT
  Sex: Male
  Weight: 4 kg

DRUGS (1)
  1. DECADRON [Suspect]
     Route: 064

REACTIONS (1)
  - POLYDACTYLY [None]
